FAERS Safety Report 13662341 (Version 1)
Quarter: 2017Q2

REPORT INFORMATION
  Report Type: Spontaneous
  Country: US (occurrence: US)
  Receive Date: 20170617
  Receipt Date: 20170617
  Transmission Date: 20170830
  Serious: No
  Sender: FDA-Public Use
  Company Number: US-LUNDBECK-DKLU2031571

PATIENT
  Age: 31 Year
  Sex: Male

DRUGS (6)
  1. ONFI [Suspect]
     Active Substance: CLOBAZAM
     Route: 048
     Dates: start: 201701
  2. ONFI [Suspect]
     Active Substance: CLOBAZAM
     Indication: LENNOX-GASTAUT SYNDROME
     Route: 065
     Dates: start: 2014
  3. ONFI [Suspect]
     Active Substance: CLOBAZAM
     Route: 048
     Dates: start: 201701
  4. PHENOBARBITAL. [Concomitant]
     Active Substance: PHENOBARBITAL
     Indication: PRODUCT USED FOR UNKNOWN INDICATION
     Route: 065
  5. ONFI [Suspect]
     Active Substance: CLOBAZAM
     Indication: EPILEPSY
     Route: 048
     Dates: start: 201701
  6. KEPPRA [Concomitant]
     Active Substance: LEVETIRACETAM
     Indication: PRODUCT USED FOR UNKNOWN INDICATION
     Route: 065

REACTIONS (3)
  - Malaise [Unknown]
  - Somnolence [Unknown]
  - Pyrexia [Unknown]

NARRATIVE: CASE EVENT DATE: 20170518
